FAERS Safety Report 10256252 (Version 3)
Quarter: 2014Q3

REPORT INFORMATION
  Report Type: Spontaneous
  Country: US (occurrence: US)
  Receive Date: 20140624
  Receipt Date: 20140806
  Transmission Date: 20150326
  Serious: Yes (Other)
  Sender: FDA-Public Use
  Company Number: US-PFIZER INC-2014167836

PATIENT
  Age: 64 Year
  Sex: Male

DRUGS (8)
  1. ATORVASTATIN CALCIUM. [Concomitant]
     Active Substance: ATORVASTATIN CALCIUM
     Dosage: 20 MG, DAILY
     Route: 048
     Dates: start: 20140522, end: 20140606
  2. PROCHLORPERAZINE MALEATE. [Concomitant]
     Active Substance: PROCHLORPERAZINE MALEATE
     Indication: NAUSEA
     Dosage: 10 MG, EVERY 6 HOURS AS NEEDED
     Route: 048
     Dates: start: 20140505, end: 20140606
  3. BOSULIF [Suspect]
     Active Substance: BOSUTINIB MONOHYDRATE
     Indication: CHRONIC MYELOID LEUKAEMIA
     Dosage: 500 MG,  EVERY DAY
     Route: 048
     Dates: start: 20140519, end: 20140604
  4. COMPAZINE [Concomitant]
     Active Substance: PROCHLORPERAZINE MALEATE
     Indication: NAUSEA
     Dosage: 10 MG, AS NEEDED (EVERY 6 HR)
     Dates: end: 20140606
  5. PROMETHAZINE HYDROCHLORIDE. [Concomitant]
     Active Substance: PROMETHAZINE HYDROCHLORIDE
     Indication: NAUSEA
     Dosage: 25 MG, EVERY 4 HOURS AS NEEDED
     Route: 048
     Dates: start: 20140531, end: 20140606
  6. ADVIL [Concomitant]
     Active Substance: IBUPROFEN
     Indication: PAIN
     Dosage: UNK
     Dates: end: 20140603
  7. ADVIL [Concomitant]
     Active Substance: IBUPROFEN
     Dosage: 100 MG, EVERY 98 HOURS AS NEEDED
     Route: 048
     Dates: start: 20140612, end: 20140620
  8. FISH OIL OMEGA 3 [Concomitant]
     Dosage: 300-1000MG CAPSULES, 1 CAPSULE, DAILY
     Route: 048
     Dates: start: 2014, end: 20140606

REACTIONS (13)
  - Hepatitis [Unknown]
  - Nausea [Unknown]
  - Decreased appetite [Unknown]
  - Transaminases increased [Unknown]
  - Oropharyngeal pain [Unknown]
  - Liver function test abnormal [Unknown]
  - Rash [Recovered/Resolved]
  - Pyrexia [Recovered/Resolved]
  - Arthralgia [Recovered/Resolved]
  - Myalgia [Recovered/Resolved]
  - Chromaturia [Recovered/Resolved]
  - Jaundice [Recovered/Resolved]
  - Diarrhoea [Recovered/Resolved]

NARRATIVE: CASE EVENT DATE: 20140602
